FAERS Safety Report 10179456 (Version 1)
Quarter: 2014Q2

REPORT INFORMATION
  Report Type: Spontaneous
  Country: ZA (occurrence: ZA)
  Receive Date: 20140519
  Receipt Date: 20140519
  Transmission Date: 20141212
  Serious: Yes (Death)
  Sender: FDA-Public Use
  Company Number: ZA-BAYER-2014-069518

PATIENT
  Age: 8 Year
  Sex: Male
  Weight: 23 kg

DRUGS (2)
  1. BAYER ASPIRIN [Suspect]
     Indication: ABDOMINAL PAIN
  2. BAYER ASPIRIN [Suspect]
     Indication: VOMITING

REACTIONS (8)
  - Reye^s syndrome [Fatal]
  - Pancreatitis haemorrhagic [Fatal]
  - Coma [Fatal]
  - Abdominal tenderness [Fatal]
  - Hepatic enzyme increased [Fatal]
  - Lethargy [Fatal]
  - Bronchopneumonia [Fatal]
  - Convulsion [Fatal]
